FAERS Safety Report 7864291-7 (Version None)
Quarter: 2011Q4

REPORT INFORMATION
  Report Type: 
  Country: None (occurrence: None)
  Receive Date: 20111028
  Receipt Date: 20110321
  Transmission Date: 20120403
  Serious: No
  Sender: FDA-Public Use
  Company Number: US-GLAXOSMITHKLINE-A0919230A

PATIENT
  Age: 75 Year
  Sex: Male

DRUGS (13)
  1. DICLOFENAC POTASSIUM [Concomitant]
  2. METOPROLOL TARTRATE [Concomitant]
  3. AMLODIPINE [Concomitant]
  4. VITAMIN E [Concomitant]
  5. ASPIRIN [Concomitant]
  6. MONTELUKAST SODIUM [Concomitant]
  7. CENTRUM SILVER [Concomitant]
  8. SEREVENT [Suspect]
     Indication: ASBESTOSIS
     Dosage: 1PUFF TWICE PER DAY
     Route: 055
     Dates: start: 20110308
  9. OMEPRAZOLE [Concomitant]
  10. PRAZOSIN HCL [Concomitant]
  11. COMBIVENT [Concomitant]
  12. AMIODARONE HCL [Concomitant]
  13. SIMVASTATIN [Concomitant]

REACTIONS (1)
  - DIZZINESS [None]
